FAERS Safety Report 15492892 (Version 1)
Quarter: 2018Q4

REPORT INFORMATION
  Report Type: Spontaneous
  Country: US (occurrence: US)
  Receive Date: 20181012
  Receipt Date: 20181012
  Transmission Date: 20190205
  Serious: No
  Sender: FDA-Public Use
  Company Number: US-BAYER-2018-190631

PATIENT
  Age: 70 Year
  Sex: Female

DRUGS (1)
  1. BETASERON [Suspect]
     Active Substance: INTERFERON BETA-1B
     Indication: MULTIPLE SCLEROSIS
     Dosage: 0.25 MG, UNK
     Dates: start: 1997

REACTIONS (7)
  - Incontinence [None]
  - Hypoaesthesia [None]
  - Rhinitis allergic [None]
  - Paraesthesia [None]
  - Depression [Not Recovered/Not Resolved]
  - Balance disorder [None]
  - Back pain [None]
